FAERS Safety Report 20695185 (Version 1)
Quarter: 2022Q2

REPORT INFORMATION
  Report Type: Other
  Country: CA (occurrence: CA)
  Receive Date: 20220411
  Receipt Date: 20220411
  Transmission Date: 20220721
  Serious: Yes (Other)
  Sender: FDA-Public Use
  Company Number: None

PATIENT
  Age: 20 Year
  Sex: Female

DRUGS (2)
  1. MYCOPHENOLATE MOFETIL [Suspect]
     Active Substance: MYCOPHENOLATE MOFETIL
     Indication: Hypophysitis
  2. AZATHIOPRINE [Suspect]
     Active Substance: AZATHIOPRINE
     Indication: Hypophysitis

REACTIONS (6)
  - Diabetes insipidus [Unknown]
  - Hepatitis [Unknown]
  - Hyperglycaemia [Unknown]
  - Hypopituitarism [Unknown]
  - Pituitary-dependent Cushing^s syndrome [Unknown]
  - Off label use [Unknown]
